FAERS Safety Report 24166157 (Version 4)
Quarter: 2024Q4

REPORT INFORMATION
  Report Type: Spontaneous
  Country: JP (occurrence: JP)
  Receive Date: 20240802
  Receipt Date: 20241129
  Transmission Date: 20250115
  Serious: Yes (Other)
  Sender: GENMAB
  Company Number: JP-GENMAB-2024-02690

PATIENT
  Age: 67 Year
  Sex: Male

DRUGS (6)
  1. EPKINLY [Suspect]
     Active Substance: EPCORITAMAB-BYSP
     Indication: Diffuse large B-cell lymphoma refractory
     Dosage: 0.16 MILLIGRAM, SINGLE
     Route: 065
     Dates: start: 202401, end: 202401
  2. EPKINLY [Suspect]
     Active Substance: EPCORITAMAB-BYSP
     Dosage: 0.16 MILLIGRAM, SINGLE
     Route: 065
     Dates: start: 2024, end: 2024
  3. EPKINLY [Suspect]
     Active Substance: EPCORITAMAB-BYSP
     Dosage: 48 MILLIGRAM, UNTILL THE SECOND ADMINISTRATION IN CYCLE 3 OF EPKINLY
     Route: 065
     Dates: start: 2024, end: 2024
  4. DEXAMETHASONE [Concomitant]
     Active Substance: DEXAMETHASONE
     Indication: Premedication
     Dosage: 9.9 MILLIGRAM, AT THE FIRST ADMINISTRATION IN CYCLE 1
     Dates: start: 202401, end: 202401
  5. DEXAMETHASONE [Concomitant]
     Active Substance: DEXAMETHASONE
     Dosage: 6.6 MILLIGRAM, FROM THE SECOND TO THE FOURTH ADMINISTRATION IN CYCLE 1
     Dates: start: 2024, end: 2024
  6. GEMCITABINE [Concomitant]
     Active Substance: GEMCITABINE
     Indication: Premedication
     Dosage: 2 GRAM, SINGLE

REACTIONS (5)
  - Diffuse large B-cell lymphoma [Unknown]
  - Cytokine release syndrome [Unknown]
  - Cytokine release syndrome [Unknown]
  - Cytokine release syndrome [Unknown]
  - Cytokine release syndrome [Unknown]

NARRATIVE: CASE EVENT DATE: 20240101
